FAERS Safety Report 9022040 (Version 1)
Quarter: 2013Q1

REPORT INFORMATION
  Report Type: Spontaneous
  Country: US (occurrence: US)
  Receive Date: 20130118
  Receipt Date: 20130118
  Transmission Date: 20140127
  Serious: No
  Sender: FDA-Public Use
  Company Number: US-SANOFI-AVENTIS-2012SA046083

PATIENT
  Sex: Male
  Weight: 127 kg

DRUGS (6)
  1. LASIX [Suspect]
     Indication: HYPERTENSION
     Route: 065
     Dates: start: 2011
  2. XANAX [Suspect]
     Route: 065
     Dates: start: 2009
  3. ALPRAZOLAM [Concomitant]
  4. POTASSIUM CHLORIDE [Concomitant]
  5. AMLODIPINE/BENAZEPRIL [Concomitant]
  6. DULOXETINE HYDROCHLORIDE [Concomitant]

REACTIONS (1)
  - Drug screen negative [Not Recovered/Not Resolved]
